FAERS Safety Report 23982733 (Version 3)
Quarter: 2024Q3

REPORT INFORMATION
  Report Type: Spontaneous
  Country: US (occurrence: US)
  Receive Date: 20240617
  Receipt Date: 20240815
  Transmission Date: 20241017
  Serious: Yes (Disabling)
  Sender: APELLIS PHARMACEUTICALS
  Company Number: PVI-US-2024-001028

PATIENT

DRUGS (2)
  1. SYFOVRE [Suspect]
     Active Substance: PEGCETACOPLAN
     Indication: Dry age-related macular degeneration
     Dosage: OS (LEFT EYE) - UNKNOWN DOSE, 45-60 DAYS INTERVAL
     Route: 031
     Dates: start: 20230907, end: 20240528
  2. SYFOVRE [Suspect]
     Active Substance: PEGCETACOPLAN
     Dosage: OD (RIGHT EYE) - UNKNOWN DOSE, 45-60 DAYS INTERVAL
     Route: 031
     Dates: start: 20230920, end: 20240528

REACTIONS (3)
  - Visual impairment [Not Recovered/Not Resolved]
  - Macular degeneration [Not Recovered/Not Resolved]
  - Vitreous floaters [Unknown]

NARRATIVE: CASE EVENT DATE: 20240129
